FAERS Safety Report 21461614 (Version 3)
Quarter: 2023Q1

REPORT INFORMATION
  Report Type: Report from Study
  Country: US (occurrence: US)
  Receive Date: 20221015
  Receipt Date: 20230316
  Transmission Date: 20230417
  Serious: No
  Sender: FDA-Public Use
  Company Number: US-ABBVIE-22K-163-4458846-00

PATIENT
  Sex: Male

DRUGS (1)
  1. SKYRIZI [Suspect]
     Active Substance: RISANKIZUMAB-RZAA
     Indication: Psoriasis
     Dosage: FORM STRENGTH: 150MG
     Route: 058
     Dates: start: 20211110

REACTIONS (6)
  - Pain of skin [Unknown]
  - Skin induration [Not Recovered/Not Resolved]
  - Pain [Unknown]
  - Scab [Not Recovered/Not Resolved]
  - Skin haemorrhage [Unknown]
  - Skin fissures [Not Recovered/Not Resolved]
